FAERS Safety Report 6407367-3 (Version None)
Quarter: 2009Q4

REPORT INFORMATION
  Report Type: 
  Country: None (occurrence: None)
  Receive Date: 20091014
  Receipt Date: 20091002
  Transmission Date: 20100525
  Serious: Yes (Hospitalization)
  Sender: FDA-Public Use
  Company Number: 2009-04114

PATIENT
  Age: 58 Year
  Sex: Male

DRUGS (2)
  1. VELCADE [Suspect]
     Indication: MULTIPLE MYELOMA
     Dosage: INTRAVENOUS
     Route: 042
  2. DEXAMETHASONE [Concomitant]

REACTIONS (5)
  - CAPILLARY LEAK SYNDROME [None]
  - DRUG HYPERSENSITIVITY [None]
  - HYPOVOLAEMIC SHOCK [None]
  - NEUROPATHY PERIPHERAL [None]
  - PLEURAL EFFUSION [None]
